FAERS Safety Report 6315290-8 (Version None)
Quarter: 2009Q3

REPORT INFORMATION
  Report Type: 
  Country: None (occurrence: None)
  Receive Date: 20090819
  Receipt Date: 20090505
  Transmission Date: 20100115
  Serious: Yes (Other)
  Sender: FDA-Public Use
  Company Number: PHEH2009US09059

PATIENT
  Sex: Female

DRUGS (10)
  1. MIACALCIN [Suspect]
     Dosage: 20 MG, UNK
  2. PRAVACHOL [Concomitant]
  3. NEXIUM [Concomitant]
  4. PRILOSEC [Concomitant]
  5. CITRACAL [Concomitant]
  6. VITAMIN D [Concomitant]
     Dosage: 50000 U, UNK
  7. FLAXSEED OIL [Concomitant]
  8. FERROUS SULFATE TAB [Concomitant]
     Dosage: 50 MG, UNK
  9. FLUOXETINE [Concomitant]
  10. METOPROLOL - SLOW RELEASE [Concomitant]

REACTIONS (3)
  - DRUG INEFFECTIVE [None]
  - GASTROOESOPHAGEAL REFLUX DISEASE [None]
  - HYPERTENSION [None]
